FAERS Safety Report 9441099 (Version 2)
Quarter: 2013Q4

REPORT INFORMATION
  Report Type: Spontaneous
  Country: FR (occurrence: FR)
  Receive Date: 20130805
  Receipt Date: 20131125
  Transmission Date: 20140711
  Serious: Yes (Other)
  Sender: FDA-Public Use
  Company Number: FR-SHIRE-ALL1-2013-05051

PATIENT
  Age: 76 Year
  Sex: Male

DRUGS (3)
  1. XAGRID [Suspect]
     Indication: ESSENTIAL THROMBOCYTHAEMIA
     Dosage: 6 DF, 1X/DAY:QD (0.5MG CAPSULE)
     Route: 048
     Dates: start: 20120327, end: 20130218
  2. PLAVIX [Concomitant]
     Indication: PRODUCT USED FOR UNKNOWN INDICATION
     Dosage: 1 DF, 1X/DAY:QD
     Route: 048
     Dates: start: 20111020, end: 201302
  3. PLAVIX [Concomitant]
     Dosage: UNK, UNKNOWN
     Route: 048
     Dates: start: 201303

REACTIONS (4)
  - Eosinophilia [Recovered/Resolved]
  - Renal failure chronic [Recovered/Resolved with Sequelae]
  - Post procedural haemorrhage [Unknown]
  - Treatment failure [Unknown]
